FAERS Safety Report 7990373-5 (Version None)
Quarter: 2011Q4

REPORT INFORMATION
  Report Type: 
  Country: None (occurrence: None)
  Receive Date: 20111219
  Receipt Date: 20110311
  Transmission Date: 20120403
  Serious: No
  Sender: FDA-Public Use
  Company Number: US-ASTRAZENECA-2011SE10623

PATIENT
  Age: 78 Year
  Sex: Female
  Weight: 81.6 kg

DRUGS (3)
  1. CRESTOR [Suspect]
     Route: 048
     Dates: start: 20110131
  2. WARFARIN SODIUM [Concomitant]
     Indication: ANTICOAGULANT THERAPY
  3. OTHER MEDICATIONS [Concomitant]

REACTIONS (5)
  - VISUAL IMPAIRMENT [None]
  - MYALGIA [None]
  - ASTHENIA [None]
  - DIZZINESS [None]
  - WEIGHT INCREASED [None]
